FAERS Safety Report 20780147 (Version 2)
Quarter: 2022Q2

REPORT INFORMATION
  Report Type: Report from Study
  Country: GB (occurrence: GB)
  Receive Date: 20220503
  Receipt Date: 20220505
  Transmission Date: 20220720
  Serious: Yes (Life-Threatening, Hospitalization, Other)
  Sender: FDA-Public Use
  Company Number: GB-JNJFOC-20220438288

PATIENT
  Age: 53 Year
  Sex: Female
  Weight: 118 kg

DRUGS (5)
  1. AMIVANTAMAB [Suspect]
     Active Substance: AMIVANTAMAB
     Indication: Non-small cell lung cancer
     Route: 042
     Dates: start: 20220413, end: 20220414
  2. CARBOPLATIN [Suspect]
     Active Substance: CARBOPLATIN
     Indication: Non-small cell lung cancer
     Route: 042
     Dates: start: 20220413, end: 20220413
  3. PEMETREXED [Suspect]
     Active Substance: PEMETREXED
     Indication: Non-small cell lung cancer
     Route: 042
     Dates: start: 20220413, end: 20220413
  4. CHLORPHENIRAMINE MALEATE [Concomitant]
     Active Substance: CHLORPHENIRAMINE MALEATE
     Indication: Product used for unknown indication
     Route: 048
     Dates: start: 20220413
  5. ACITRETIN [Concomitant]
     Active Substance: ACITRETIN
     Indication: Psoriasis
     Route: 048

REACTIONS (7)
  - Sepsis [Not Recovered/Not Resolved]
  - Neutropenia [Not Recovered/Not Resolved]
  - Stomatitis [Not Recovered/Not Resolved]
  - Dehydration [Not Recovered/Not Resolved]
  - Urinary tract infection [Not Recovered/Not Resolved]
  - Neutropenic sepsis [Not Recovered/Not Resolved]
  - Neutrophil count decreased [Not Recovered/Not Resolved]

NARRATIVE: CASE EVENT DATE: 20220418
